FAERS Safety Report 10802597 (Version 1)
Quarter: 2015Q1

REPORT INFORMATION
  Report Type: Spontaneous
  Country: US (occurrence: US)
  Receive Date: 20150217
  Receipt Date: 20150217
  Transmission Date: 20150721
  Serious: No
  Sender: FDA-Public Use
  Company Number: US-BAYER-2015-024132

PATIENT
  Age: 71 Year
  Sex: Female

DRUGS (2)
  1. CLIMARA [Suspect]
     Active Substance: ESTRADIOL
     Indication: DRY EYE
     Dosage: 0.1 MG, OW
     Route: 062
     Dates: start: 201403, end: 201502
  2. CLIMARA [Suspect]
     Active Substance: ESTRADIOL
     Indication: HOT FLUSH
     Dosage: 0.1 MG, OW
     Route: 062
     Dates: start: 2009, end: 201401

REACTIONS (3)
  - Blood pressure systolic increased [Recovered/Resolved]
  - Intentional product misuse [None]
  - Drug withdrawal syndrome [None]

NARRATIVE: CASE EVENT DATE: 201401
